FAERS Safety Report 5839258-0 (Version None)
Quarter: 2008Q3

REPORT INFORMATION
  Report Type: 
  Country: None (occurrence: None)
  Receive Date: 20080808
  Receipt Date: 20080729
  Transmission Date: 20090109
  Serious: Yes (Other)
  Sender: FDA-Public Use
  Company Number: GB-PFIZER INC-2008063316

PATIENT
  Age: 31 Year
  Sex: Female

DRUGS (1)
  1. CHANTIX [Suspect]
     Dosage: TEXT:UNIT DOSE: 500UG
     Route: 048
     Dates: start: 20080702, end: 20080709

REACTIONS (2)
  - PAIN IN EXTREMITY [None]
  - RASH [None]
